FAERS Safety Report 4503788-4 (Version None)
Quarter: 2004Q4

REPORT INFORMATION
  Report Type: 
  Country: None (occurrence: None)
  Receive Date: 20041117
  Receipt Date: 20041112
  Transmission Date: 20050328
  Serious: Yes (Disabling)
  Sender: FDA-Public Use
  Company Number: US-MERCK-0411USA02333

PATIENT
  Age: 60 Year
  Sex: Female

DRUGS (6)
  1. FOSAMAX [Suspect]
     Indication: OSTEOPOROSIS
     Route: 048
     Dates: end: 20040801
  2. NEXIUM [Concomitant]
     Route: 065
  3. SINGULAIR [Concomitant]
     Route: 048
  4. SINGULAIR [Concomitant]
     Route: 048
  5. CALCIUM (UNSPECIFIED) [Concomitant]
     Route: 065
  6. [THERAPY UNSPECIFIED] [Concomitant]
     Indication: ASTHMA
     Route: 065

REACTIONS (2)
  - DYSPEPSIA [None]
  - GASTRIC DISORDER [None]
